FAERS Safety Report 14142678 (Version 1)
Quarter: 2017Q4

REPORT INFORMATION
  Report Type: Spontaneous
  Country: US (occurrence: US)
  Receive Date: 20171030
  Receipt Date: 20171030
  Transmission Date: 20180321
  Serious: Yes (Death, Other)
  Sender: FDA-Public Use
  Company Number: US-ASTELLAS-2017US044025

PATIENT
  Age: 90 Year
  Sex: Female

DRUGS (1)
  1. LEXISCAN [Suspect]
     Active Substance: REGADENOSON
     Indication: PRODUCT USED FOR UNKNOWN INDICATION
     Dosage: UNK, TOTAL DOSE
     Route: 065
     Dates: start: 201709, end: 201709

REACTIONS (2)
  - Atrioventricular block [Unknown]
  - Death [Fatal]

NARRATIVE: CASE EVENT DATE: 201709
